FAERS Safety Report 23755312 (Version 1)
Quarter: 2024Q2

REPORT INFORMATION
  Report Type: Other
  Country: JP (occurrence: JP)
  Receive Date: 20240418
  Receipt Date: 20240418
  Transmission Date: 20240716
  Serious: Yes (Other)
  Sender: FDA-Public Use
  Company Number: JP-CHUGAI-2024012324AA

PATIENT
  Age: 70 Year
  Sex: Female

DRUGS (4)
  1. AVASTIN [Suspect]
     Active Substance: BEVACIZUMAB
     Indication: Cervix carcinoma
     Dosage: UNK
     Route: 065
  2. PACLITAXEL [Suspect]
     Active Substance: PACLITAXEL
     Indication: Cervix carcinoma
     Dosage: UNK
     Route: 065
  3. CARBOPLATIN [Suspect]
     Active Substance: CARBOPLATIN
     Indication: Cervix carcinoma
     Dosage: UNK
     Route: 065
  4. NEDAPLATIN [Suspect]
     Active Substance: NEDAPLATIN
     Indication: Cervix carcinoma
     Dosage: UNK
     Route: 065

REACTIONS (2)
  - Malaise [Unknown]
  - Pyogenic granuloma [Recovered/Resolved]
